FAERS Safety Report 18630217 (Version 7)
Quarter: 2025Q1

REPORT INFORMATION
  Report Type: Report from Study
  Country: CA (occurrence: CA)
  Receive Date: 20201218
  Receipt Date: 20250306
  Transmission Date: 20250408
  Serious: Yes (Other)
  Sender: TAKEDA
  Company Number: CA-TAKEDA-2019TUS055852

PATIENT
  Age: 66 Year
  Sex: Male

DRUGS (27)
  1. VEDOLIZUMAB [Suspect]
     Active Substance: VEDOLIZUMAB
     Indication: Colitis ulcerative
  2. VEDOLIZUMAB [Suspect]
     Active Substance: VEDOLIZUMAB
  3. VEDOLIZUMAB [Suspect]
     Active Substance: VEDOLIZUMAB
  4. VEDOLIZUMAB [Suspect]
     Active Substance: VEDOLIZUMAB
  5. VEDOLIZUMAB [Suspect]
     Active Substance: VEDOLIZUMAB
  6. VEDOLIZUMAB [Suspect]
     Active Substance: VEDOLIZUMAB
  7. VEDOLIZUMAB [Suspect]
     Active Substance: VEDOLIZUMAB
  8. VEDOLIZUMAB [Suspect]
     Active Substance: VEDOLIZUMAB
  9. PERCOCET [Suspect]
     Active Substance: ACETAMINOPHEN\OXYCODONE HYDROCHLORIDE
     Indication: Product used for unknown indication
  10. Salofalk [Concomitant]
     Dosage: UNK, QD
  11. IMODIUM [Concomitant]
     Active Substance: LOPERAMIDE HYDROCHLORIDE
  12. MESALAMINE [Concomitant]
     Active Substance: MESALAMINE
  13. CARVEDILOL [Concomitant]
     Active Substance: CARVEDILOL
  14. FAMOTIDINE [Concomitant]
     Active Substance: FAMOTIDINE
  15. FLUTICASONE PROPIONATE [Concomitant]
     Active Substance: FLUTICASONE PROPIONATE
     Indication: Inhalation therapy
  16. FUROSEMIDE [Concomitant]
     Active Substance: FUROSEMIDE
  17. NOVORAPID [Concomitant]
     Active Substance: INSULIN ASPART
     Dosage: UNK, TID
  18. LANTUS [Concomitant]
     Active Substance: INSULIN GLARGINE
     Dosage: UNK, QD
  19. METAMUCIL [Concomitant]
     Active Substance: PLANTAGO SEED
     Dosage: UNK, BID
  20. METFORMIN [Concomitant]
     Active Substance: METFORMIN HYDROCHLORIDE
     Dosage: UNK, BID
  21. NITROGLYCERIN [Concomitant]
     Active Substance: NITROGLYCERIN
  22. RABEPRAZOLE [Concomitant]
     Active Substance: RABEPRAZOLE
  23. RAMIPRIL [Concomitant]
     Active Substance: RAMIPRIL
  24. RANITIDINE [Concomitant]
     Active Substance: RANITIDINE
  25. RIVAROXABAN [Concomitant]
     Active Substance: RIVAROXABAN
  26. ROSUVASTATIN [Concomitant]
     Active Substance: ROSUVASTATIN
  27. ALBUTEROL [Concomitant]
     Active Substance: ALBUTEROL
     Indication: Inhalation therapy

REACTIONS (4)
  - Diverticulitis [Recovered/Resolved]
  - Constipation [Unknown]
  - Diarrhoea [Not Recovered/Not Resolved]
  - Back pain [Unknown]

NARRATIVE: CASE EVENT DATE: 20200605
